FAERS Safety Report 8175935-7 (Version None)
Quarter: 2012Q1

REPORT INFORMATION
  Report Type: 
  Country: None (occurrence: None)
  Receive Date: 20120228
  Receipt Date: 20120221
  Transmission Date: 20120608
  Serious: Yes (Other)
  Sender: FDA-Public Use
  Company Number: GER/GER/12/0023109

PATIENT
  Age: 29 Year
  Sex: Female
  Weight: 62 kg

DRUGS (4)
  1. NAUSEMA(NEUROBION /00176001/) [Concomitant]
  2. FOLSAEURE (FOLIC ACID) [Concomitant]
  3. VENLAFAXINE [Suspect]
     Indication: ANXIETY DISORDER
     Dosage: 187.5 MG, 1 IN 1 D, ORAL
     Route: 048
     Dates: start: 20110218, end: 20110929
  4. MCP-TROPFEN (METOCLOPRAMIDE HYDROCHLORIDE) [Concomitant]

REACTIONS (5)
  - INDUCED LABOUR [None]
  - PREMATURE SEPARATION OF PLACENTA [None]
  - MATERNAL EXPOSURE DURING PREGNANCY [None]
  - FOETAL DEATH [None]
  - STILLBIRTH [None]
